FAERS Safety Report 6943061-8 (Version None)
Quarter: 2010Q3

REPORT INFORMATION
  Report Type: 
  Country: None (occurrence: None)
  Receive Date: 20100826
  Receipt Date: 20100819
  Transmission Date: 20110219
  Serious: Yes (Death, Life-Threatening)
  Sender: FDA-Public Use
  Company Number: JP-GENZYME-THYM-1001786

PATIENT
  Sex: Female
  Weight: 43 kg

DRUGS (8)
  1. THYMOGLOBULIN [Suspect]
     Indication: APLASTIC ANAEMIA
     Dosage: 110 MG, QD
     Route: 042
     Dates: start: 20090924, end: 20090928
  2. PREDNISOLONE [Concomitant]
     Indication: PREMEDICATION
     Dosage: UNK
     Dates: start: 20090924, end: 20100318
  3. PREDNISOLONE [Concomitant]
     Indication: APLASTIC ANAEMIA
  4. PENTAMIDINE ISETHIONATE [Concomitant]
     Indication: INFECTION PROPHYLAXIS
     Dosage: UNK
     Dates: start: 20090923, end: 20100323
  5. CYCLOSPORINE [Concomitant]
     Indication: APLASTIC ANAEMIA
     Dosage: UNK
     Dates: start: 20090930, end: 20100316
  6. ENTECAVIR [Concomitant]
     Indication: HEPATITIS B
     Dosage: UNK
     Dates: start: 20090930, end: 20100321
  7. FLUCONAZOLE [Concomitant]
     Indication: INFECTION PROPHYLAXIS
     Dosage: UNK
     Dates: start: 20090923, end: 20100323
  8. GARENOXACIN [Concomitant]
     Indication: INFECTION PROPHYLAXIS
     Dosage: UNK
     Dates: start: 20090923, end: 20100323

REACTIONS (2)
  - APLASTIC ANAEMIA [None]
  - PNEUMONIA [None]
